FAERS Safety Report 12655119 (Version 2)
Quarter: 2016Q3

REPORT INFORMATION
  Report Type: Report from Study
  Country: BR (occurrence: BR)
  Receive Date: 20160816
  Receipt Date: 20160819
  Transmission Date: 20161109
  Serious: Yes (Hospitalization, Other)
  Sender: FDA-Public Use
  Company Number: BR-ABBVIE-16K-020-1697277-00

PATIENT
  Age: 34 Year
  Sex: Female
  Weight: 72 kg

DRUGS (1)
  1. HUMIRA [Suspect]
     Active Substance: ADALIMUMAB
     Indication: CROHN^S DISEASE
     Route: 058
     Dates: start: 20160420

REACTIONS (12)
  - Haemorrhage [Recovering/Resolving]
  - Anaemia [Recovering/Resolving]
  - Hypophagia [Unknown]
  - Gastritis [Unknown]
  - Dehydration [Recovering/Resolving]
  - Haemorrhoids [Unknown]
  - Colitis [Unknown]
  - Full blood count abnormal [Unknown]
  - Malaise [Unknown]
  - Fluid intake reduced [Unknown]
  - Large intestine polyp [Unknown]
  - Emotional disorder [Unknown]

NARRATIVE: CASE EVENT DATE: 2016
